FAERS Safety Report 17952222 (Version 1)
Quarter: 2020Q2

REPORT INFORMATION
  Report Type: Spontaneous
  Country: US (occurrence: US)
  Receive Date: 20200626
  Receipt Date: 20200626
  Transmission Date: 20200714
  Serious: No
  Sender: FDA-Public Use
  Company Number: US-INCYTE CORPORATION-2020IN005985

PATIENT

DRUGS (1)
  1. JAKAFI [Suspect]
     Active Substance: RUXOLITINIB
     Indication: POLYCYTHAEMIA VERA
     Dosage: 5 MG (2 TABLETS), QAM AND 5 MG (1 TABLET), QPM
     Route: 048
     Dates: start: 20180605

REACTIONS (2)
  - Splenomegaly [Unknown]
  - Blood disorder [Unknown]
